FAERS Safety Report 8271373-7 (Version None)
Quarter: 2012Q2

REPORT INFORMATION
  Report Type: 
  Country: None (occurrence: None)
  Receive Date: 20120410
  Receipt Date: 20120208
  Transmission Date: 20120825
  Serious: No
  Sender: FDA-Public Use
  Company Number: US-NOVEN-12US004071

PATIENT
  Sex: Female
  Weight: 82.086 kg

DRUGS (8)
  1. MULTI-VITAMINS [Concomitant]
     Indication: PRODUCT USED FOR UNKNOWN INDICATION
  2. SIMVASTATIN [Concomitant]
     Indication: PRODUCT USED FOR UNKNOWN INDICATION
     Route: 048
  3. CYMBALTA [Concomitant]
     Indication: PRODUCT USED FOR UNKNOWN INDICATION
     Route: 048
  4. METHOCARBAMOL [Concomitant]
     Indication: PRODUCT USED FOR UNKNOWN INDICATION
  5. IBUPROFEN [Concomitant]
     Indication: PRODUCT USED FOR UNKNOWN INDICATION
     Route: 048
  6. FENTANYL CITRATE [Suspect]
     Indication: FIBROMYALGIA
  7. FENTANYL CITRATE [Suspect]
     Indication: INTERVERTEBRAL DISC DEGENERATION
     Dosage: 50 UG/HR, EVERY 3 DAYS
     Route: 062
     Dates: start: 20010101
  8. FENTANYL CITRATE [Suspect]
     Indication: ARTHRITIS

REACTIONS (1)
  - DRUG WITHDRAWAL SYNDROME [None]
